FAERS Safety Report 25181540 (Version 3)
Quarter: 2025Q2

REPORT INFORMATION
  Report Type: Spontaneous
  Country: US (occurrence: US)
  Receive Date: 20250410
  Receipt Date: 20250512
  Transmission Date: 20250717
  Serious: No
  Sender: LUPIN
  Company Number: US-LUPIN PHARMACEUTICALS INC.-2025-02817

PATIENT
  Age: 73 Year
  Weight: 54.422 kg

DRUGS (1)
  1. PREDNISOLONE ACETATE [Suspect]
     Active Substance: PREDNISOLONE ACETATE
     Indication: Cataract operation

REACTIONS (4)
  - Incorrect dose administered by product [Unknown]
  - Product container issue [Unknown]
  - No adverse event [Unknown]
  - Product packaging issue [Unknown]
